FAERS Safety Report 10662701 (Version 1)
Quarter: 2014Q4

REPORT INFORMATION
  Report Type: Report from Study
  Country: HU (occurrence: HU)
  Receive Date: 20141218
  Receipt Date: 20141218
  Transmission Date: 20150529
  Serious: Yes (Hospitalization)
  Sender: FDA-Public Use
  Company Number: HU-EXELIXIS-XL18414005026

PATIENT
  Age: 70 Year
  Sex: Male
  Weight: 80 kg

DRUGS (6)
  1. LERCATON [Concomitant]
  2. COPRENESSA [Concomitant]
  3. TANYZ [Concomitant]
  4. DEPRESSAN [Concomitant]
  5. XL184 [Suspect]
     Active Substance: CABOZANTINIB
     Indication: RENAL CELL CARCINOMA
     Dosage: 60 MG, QD
     Route: 048
     Dates: start: 20140724, end: 20141201
  6. L-THYROXIN [Concomitant]
     Active Substance: LEVOTHYROXINE SODIUM

REACTIONS (2)
  - Urinary retention [None]
  - Anaemia [Recovered/Resolved]

NARRATIVE: CASE EVENT DATE: 20141202
